FAERS Safety Report 24943619 (Version 1)
Quarter: 2025Q1

REPORT INFORMATION
  Report Type: Spontaneous
  Country: EG (occurrence: EG)
  Receive Date: 20250207
  Receipt Date: 20250207
  Transmission Date: 20250408
  Serious: Yes (Disabling)
  Sender: SANDOZ
  Company Number: EG-SANDOZ-SDZ2025EG007252

PATIENT
  Age: 13 Year
  Sex: Female

DRUGS (1)
  1. OMNITROPE [Suspect]
     Active Substance: SOMATROPIN
     Indication: Growth hormone deficiency
     Dosage: UNK, QD
     Route: 058
     Dates: start: 202411, end: 20250124

REACTIONS (4)
  - Asthenia [Unknown]
  - Lethargy [Unknown]
  - Drug administered in wrong device [Unknown]
  - Product dose omission issue [Unknown]

NARRATIVE: CASE EVENT DATE: 20241101
